FAERS Safety Report 12119843 (Version 1)
Quarter: 2016Q1

REPORT INFORMATION
  Report Type: Spontaneous
  Country: JP (occurrence: JP)
  Receive Date: 20160226
  Receipt Date: 20160226
  Transmission Date: 20160526
  Serious: Yes (Other)
  Sender: FDA-Public Use
  Company Number: JP-VIFOR (INTERNATIONAL) INC.-VIT-2016-00926

PATIENT
  Sex: Male

DRUGS (4)
  1. VELPHORO [Suspect]
     Active Substance: FERRIC OXYHYDROXIDE
     Indication: PRODUCT USED FOR UNKNOWN INDICATION
     Route: 048
  2. FOSRENOL [Concomitant]
     Active Substance: LANTHANUM CARBONATE
     Route: 048
  3. SENNOSIDE A+B [Concomitant]
     Active Substance: SENNOSIDES A AND B
     Route: 048
  4. SORBITOL. [Concomitant]
     Active Substance: SORBITOL
     Indication: CONSTIPATION PROPHYLAXIS
     Route: 048

REACTIONS (3)
  - Diarrhoea [Unknown]
  - Frequent bowel movements [Unknown]
  - Melaena [Unknown]
